FAERS Safety Report 7497217-9 (Version None)
Quarter: 2011Q2

REPORT INFORMATION
  Report Type: 
  Country: None (occurrence: None)
  Receive Date: 20110523
  Receipt Date: 20110518
  Transmission Date: 20111010
  Serious: Yes (Other)
  Sender: FDA-Public Use
  Company Number: US-PFIZER INC-2011107644

PATIENT
  Sex: Female
  Weight: 58.957 kg

DRUGS (2)
  1. ADVIL LIQUI-GELS [Suspect]
     Indication: DYSMENORRHOEA
     Route: 048
  2. ADVIL LIQUI-GELS [Suspect]
     Indication: DYSMENORRHOEA
     Route: 048

REACTIONS (1)
  - COLITIS COLLAGENOUS [None]
